FAERS Safety Report 11647856 (Version 1)
Quarter: 2015Q4

REPORT INFORMATION
  Report Type: Spontaneous
  Country: US (occurrence: None)
  Receive Date: 20151020
  Receipt Date: 20151020
  Transmission Date: 20160304
  Serious: No
  Sender: FDA-Public Use
  Company Number: None

PATIENT
  Age: 43 Year
  Sex: Female
  Weight: 49.9 kg

DRUGS (1)
  1. PROZAC [Suspect]
     Active Substance: FLUOXETINE HYDROCHLORIDE
     Indication: PRODUCT USED FOR UNKNOWN INDICATION
     Route: 048

REACTIONS (9)
  - Impulsive behaviour [None]
  - Depression [None]
  - Therapy cessation [None]
  - Divorced [None]
  - Family stress [None]
  - Anxiety [None]
  - Product substitution issue [None]
  - Abnormal behaviour [None]
  - Loss of employment [None]
